FAERS Safety Report 7117674-7 (Version None)
Quarter: 2010Q4

REPORT INFORMATION
  Report Type: 
  Country: None (occurrence: None)
  Receive Date: 20101123
  Receipt Date: 20101110
  Transmission Date: 20110411
  Serious: Yes (Hospitalization)
  Sender: FDA-Public Use
  Company Number: US-BIOGENIDEC-2010BI037293

PATIENT
  Age: 52 Year
  Sex: Female

DRUGS (11)
  1. TYSABRI [Suspect]
     Indication: MULTIPLE SCLEROSIS
     Route: 042
     Dates: start: 20100127, end: 20100824
  2. AVONEX [Concomitant]
     Indication: MULTIPLE SCLEROSIS
     Route: 030
  3. COUMADIN [Concomitant]
     Route: 048
  4. BACLOFEN [Concomitant]
  5. GABAPENTIN [Concomitant]
     Route: 048
  6. KEPPRA [Concomitant]
     Route: 048
  7. KEPPRA [Concomitant]
     Route: 048
  8. MACROBID [Concomitant]
     Route: 048
  9. DILAUDID [Concomitant]
     Route: 048
  10. ADVAIR DISKUS 100/50 [Concomitant]
     Route: 055
  11. DILANTIN [Concomitant]
     Route: 048

REACTIONS (3)
  - ATRIAL FLUTTER [None]
  - GASTRITIS [None]
  - NON-CARDIAC CHEST PAIN [None]
